FAERS Safety Report 8411303-8 (Version None)
Quarter: 2012Q2

REPORT INFORMATION
  Report Type: 
  Country: None (occurrence: None)
  Receive Date: 20120605
  Receipt Date: 20120529
  Transmission Date: 20120825
  Serious: Yes (Hospitalization, Other)
  Sender: FDA-Public Use
  Company Number: US-PFIZER INC-2012129294

PATIENT
  Sex: Female
  Weight: 58.05 kg

DRUGS (10)
  1. NEURONTIN [Suspect]
     Dosage: UNK
     Route: 048
     Dates: start: 20100101
  2. KLONOPIN [Suspect]
     Dosage: 2 MG, DAILY
  3. VISTARIL [Suspect]
     Dosage: UNK
     Route: 048
  4. STRATTERA [Concomitant]
     Indication: ATTENTION DEFICIT/HYPERACTIVITY DISORDER
     Dosage: 60 MG, DAILY
     Route: 048
  5. NEURONTIN [Suspect]
     Dosage: 1200 MG, UNK
     Route: 048
  6. NEURONTIN [Suspect]
     Dosage: 600 MG, 3X/DAY
     Route: 048
  7. DEPAKOTE [Suspect]
     Dosage: UNK
     Route: 048
  8. KLONOPIN [Suspect]
     Dosage: UNK
  9. SEROQUEL [Concomitant]
     Dosage: 300 MG, DAILY
     Route: 048
  10. TRAZODONE HCL [Suspect]
     Dosage: 300 MG, DAILY

REACTIONS (19)
  - DYSPNOEA [None]
  - BLOOD PRESSURE INCREASED [None]
  - MOVEMENT DISORDER [None]
  - FEELING ABNORMAL [None]
  - TREMOR [None]
  - IMPAIRED DRIVING ABILITY [None]
  - PAIN [None]
  - NERVOUSNESS [None]
  - DRUG INEFFECTIVE [None]
  - PANIC ATTACK [None]
  - TACHYCARDIA [None]
  - ACTIVITIES OF DAILY LIVING IMPAIRED [None]
  - PALPITATIONS [None]
  - ANXIETY [None]
  - WEIGHT INCREASED [None]
  - MIDDLE INSOMNIA [None]
  - ASTHENIA [None]
  - HYPERSOMNIA [None]
  - VISUAL IMPAIRMENT [None]
